FAERS Safety Report 18506106 (Version 3)
Quarter: 2020Q4

REPORT INFORMATION
  Report Type: Report from Study
  Country: ES (occurrence: ES)
  Receive Date: 20201116
  Receipt Date: 20201214
  Transmission Date: 20210114
  Serious: Yes (Life-Threatening, Other)
  Sender: FDA-Public Use
  Company Number: ES-ROCHE-2713005

PATIENT
  Sex: Female
  Weight: 75 kg

DRUGS (5)
  1. ENTEROL (BELGIUM) [Concomitant]
     Route: 042
     Dates: start: 20201028
  2. BUDESONIDE. [Concomitant]
     Active Substance: BUDESONIDE
     Indication: COVID-19
     Dates: start: 20201015, end: 20201028
  3. HEPARIN [Concomitant]
     Active Substance: HEPARIN SODIUM
     Route: 058
     Dates: start: 20201015
  4. SALBUTEROL [Concomitant]
     Indication: COVID-19
     Dates: start: 20201015
  5. TOCILIZUMAB. [Suspect]
     Active Substance: TOCILIZUMAB
     Indication: COVID-19 PNEUMONIA
     Dosage: LAST DATE OF ADMINISTRATION PRIOR TO SAE: 16/OCT/2020
     Route: 042
     Dates: start: 20201015

REACTIONS (2)
  - Acute respiratory distress syndrome [Not Recovered/Not Resolved]
  - Pneumocystis jirovecii infection [Not Recovered/Not Resolved]

NARRATIVE: CASE EVENT DATE: 20201028
